FAERS Safety Report 5267159-8 (Version None)
Quarter: 2007Q1

REPORT INFORMATION
  Report Type: 
  Country: None (occurrence: None)
  Receive Date: 20070312
  Receipt Date: 20070306
  Transmission Date: 20070707
  Serious: Yes (Hospitalization, Other)
  Sender: FDA-Public Use
  Company Number: 163-20785-06070741

PATIENT
  Age: 74 Year
  Sex: Male

DRUGS (2)
  1. THALOMID [Suspect]
     Indication: MULTIPLE MYELOMA
     Dosage: 100-200 MG, DAILY, ORAL
     Route: 048
     Dates: start: 20060329, end: 20060401
  2. THALOMID [Suspect]

REACTIONS (4)
  - ANOREXIA [None]
  - DEHYDRATION [None]
  - FAILURE TO THRIVE [None]
  - WEIGHT DECREASED [None]
